FAERS Safety Report 9772920 (Version 3)
Quarter: 2014Q2

REPORT INFORMATION
  Report Type: Spontaneous
  Country: FR (occurrence: FR)
  Receive Date: 20131219
  Receipt Date: 20140506
  Transmission Date: 20141212
  Serious: Yes (Other)
  Sender: FDA-Public Use
  Company Number: FR-BAYER-2013-152228

PATIENT
  Age: 77 Year
  Sex: Male
  Weight: 66 kg

DRUGS (12)
  1. NEXAVAR [Suspect]
     Indication: HEPATOCELLULAR CARCINOMA
     Dosage: 800 MG, QD
     Dates: start: 201105
  2. NEXAVAR [Suspect]
     Indication: HEPATOCELLULAR CARCINOMA
     Dosage: 400 MG, QD
     Route: 048
     Dates: start: 201401
  3. AMLOR [Concomitant]
     Dosage: 1 DF, QD
     Route: 048
  4. ATENOLOL [Concomitant]
     Dosage: 1 DF, QD
     Route: 048
  5. KARDEGIC [Concomitant]
     Dosage: 1 DF, QD
     Route: 048
  6. NOVONORM [Concomitant]
     Dosage: 3 MG, QD
     Route: 048
  7. PANTOPRAZOLE [Concomitant]
     Dosage: 1 DF, QD
     Route: 048
  8. TAMSULOSIN [Concomitant]
     Dosage: 1 DF, QD
     Route: 048
  9. TAHOR [Concomitant]
     Dosage: 1 DF, QD
     Route: 048
  10. DAFALGAN CODEINE [Concomitant]
     Dosage: UNK
  11. CALCIDOSE [Concomitant]
     Dosage: 3 DF, QD
     Route: 048
  12. JANUVIA [Concomitant]
     Dosage: 1 DF, QD
     Route: 048

REACTIONS (5)
  - Pain in extremity [Not Recovered/Not Resolved]
  - Diabetes mellitus [Not Recovered/Not Resolved]
  - Diarrhoea [Not Recovered/Not Resolved]
  - Pyelonephritis [Not Recovered/Not Resolved]
  - Neuralgia [None]
